FAERS Safety Report 11333829 (Version 1)
Quarter: 2015Q3

REPORT INFORMATION
  Report Type: Spontaneous
  Country: US (occurrence: US)
  Receive Date: 20150803
  Receipt Date: 20150803
  Transmission Date: 20151125
  Serious: Yes (Hospitalization)
  Sender: FDA-Public Use
  Company Number: US-ELI_LILLY_AND_COMPANY-US200902005227

PATIENT
  Sex: Male
  Weight: 106.58 kg

DRUGS (1)
  1. ZYPREXA [Suspect]
     Active Substance: OLANZAPINE
     Indication: MENTAL DISORDER
     Dosage: 2.5 MG, UNK
     Dates: start: 20010421, end: 20020116

REACTIONS (1)
  - Diabetes mellitus [Not Recovered/Not Resolved]
